FAERS Safety Report 13713758 (Version 5)
Quarter: 2018Q2

REPORT INFORMATION
  Report Type: Spontaneous
  Country: GB (occurrence: GB)
  Receive Date: 20170704
  Receipt Date: 20180427
  Transmission Date: 20180711
  Serious: Yes (Hospitalization)
  Sender: FDA-Public Use
  Company Number: GB-DRREDDYS-GER/UKI/17/0091845

PATIENT
  Age: 51 Year
  Sex: Female
  Weight: 76.2 kg

DRUGS (16)
  1. CITALOPRAM [Suspect]
     Active Substance: CITALOPRAM HYDROBROMIDE
     Dosage: 40 MG X 36 TABLETS
     Route: 048
     Dates: start: 20130307, end: 20130307
  2. NAPROXEN. [Suspect]
     Active Substance: NAPROXEN
     Indication: PAIN
     Dosage: 250 MG, BID
     Route: 048
     Dates: start: 20130307, end: 20130307
  3. OMEPRAZOLE. [Suspect]
     Active Substance: OMEPRAZOLE
     Indication: DYSPEPSIA
     Route: 048
  4. PARACETAMOL [Suspect]
     Active Substance: ACETAMINOPHEN
     Indication: PAIN
     Dosage: 1 G, QD
     Route: 048
  5. PARACETAMOL [Suspect]
     Active Substance: ACETAMINOPHEN
     Dosage: 500 MG X 16 TABLETS
     Route: 048
     Dates: start: 20130307, end: 20130307
  6. OMEPRAZOLE. [Suspect]
     Active Substance: OMEPRAZOLE
     Dosage: 20 MG X 28 TABLETS
     Route: 048
     Dates: start: 20130307, end: 20130307
  7. CITALOPRAM [Suspect]
     Active Substance: CITALOPRAM HYDROBROMIDE
     Indication: DEPRESSION
     Dosage: 40 MG UNK
     Route: 048
     Dates: start: 20090330
  8. LEVOTHYROXINE. [Suspect]
     Active Substance: LEVOTHYROXINE
     Indication: HYPOTHYROIDISM
     Dosage: 100 MCG X 79
     Route: 048
     Dates: start: 20130307, end: 20130307
  9. NAPROXEN. [Suspect]
     Active Substance: NAPROXEN
     Dosage: 250MG X 14
     Route: 048
     Dates: start: 20130307, end: 20130307
  10. VENLAFAXINE [Concomitant]
     Active Substance: VENLAFAXINE HYDROCHLORIDE
     Indication: PRODUCT USED FOR UNKNOWN INDICATION
     Dosage: 187.5 MG, QD (TITRATED)
     Route: 065
  11. LEVOTHYROXINE. [Suspect]
     Active Substance: LEVOTHYROXINE
     Dosage: 100 MG, QD
     Route: 048
  12. AMOXICILLIN. [Suspect]
     Active Substance: AMOXICILLIN
     Indication: PRODUCT USED FOR UNKNOWN INDICATION
     Dosage: 250 MG X 20 TABLETS
     Route: 048
     Dates: start: 20130307, end: 20130307
  13. AMOXICILLIN. [Suspect]
     Active Substance: AMOXICILLIN
     Route: 048
     Dates: start: 20130404
  14. VENLAFAXINE [Concomitant]
     Active Substance: VENLAFAXINE HYDROCHLORIDE
     Indication: ANTIDEPRESSANT THERAPY
     Dosage: 75MG, QD
     Route: 065
  15. AIN457 [Suspect]
     Active Substance: SECUKINUMAB
     Indication: PSORIASIS
     Dosage: 2 DF (150MG/300MG)
     Route: 058
     Dates: start: 20121214, end: 20130205
  16. CITALOPRAM [Suspect]
     Active Substance: CITALOPRAM HYDROBROMIDE
     Dosage: 40 MG, QD
     Route: 048
     Dates: start: 20130404

REACTIONS (2)
  - Suicide attempt [Recovered/Resolved]
  - Intentional overdose [Recovered/Resolved]

NARRATIVE: CASE EVENT DATE: 20130307
